FAERS Safety Report 5323769-0 (Version None)
Quarter: 2007Q2

REPORT INFORMATION
  Report Type: 
  Country: None (occurrence: None)
  Receive Date: 20070220
  Receipt Date: 20070117
  Transmission Date: 20071010
  Serious: No
  Sender: FDA-Public Use
  Company Number: WAES 0701USA02402

PATIENT
  Age: 66 Year
  Sex: Male

DRUGS (2)
  1. TAB JANUVIA 100 MG [Suspect]
     Indication: DIABETES MELLITUS
     Dosage: 100 MG/DAILY/PO
     Route: 048
     Dates: start: 20070103
  2. ZOCOR [Concomitant]

REACTIONS (3)
  - EAR DISORDER [None]
  - EAR PAIN [None]
  - HYPOACUSIS [None]
